FAERS Safety Report 7410349-6 (Version None)
Quarter: 2011Q2

REPORT INFORMATION
  Report Type: 
  Country: None (occurrence: None)
  Receive Date: 20110412
  Receipt Date: 20110401
  Transmission Date: 20111010
  Serious: Yes (Death, Other)
  Sender: FDA-Public Use
  Company Number: US-WATSON-2010-16319

PATIENT
  Sex: Male

DRUGS (14)
  1. MIRTAZAPINE [Suspect]
     Indication: ANXIETY
     Dosage: 30 MG, QHS
     Route: 048
     Dates: start: 20101014
  2. DICYCLOMINE [Concomitant]
     Indication: PRODUCT USED FOR UNKNOWN INDICATION
     Dosage: 10 MG, QID
     Route: 048
     Dates: start: 20101111
  3. BUSPIRONE HYDROCHLORIDE [Suspect]
     Dosage: 1TABLET, TID
     Route: 048
     Dates: start: 20091022
  4. GABAPENTIN [Suspect]
     Indication: PAIN
     Dosage: 300 MG, TID
     Route: 048
     Dates: start: 20100925, end: 20101101
  5. BUSPIRONE HYDROCHLORIDE [Suspect]
     Indication: ANXIETY
     Dosage: 15 MG, TID
     Route: 048
     Dates: end: 20101101
  6. TRAZODONE [Suspect]
     Indication: ANXIETY
  7. VERAPAMIL [Suspect]
     Indication: HYPERTENSION
     Dosage: 180 MG, BID
     Route: 065
     Dates: start: 20091123
  8. DICYCLOMINE [Concomitant]
     Dosage: 10 MG, QID
     Route: 048
  9. TRAZODONE [Suspect]
     Indication: DEPRESSION
     Dosage: 100 MG, QHS
     Route: 048
     Dates: start: 20100925, end: 20101119
  10. MIRTAZAPINE [Suspect]
     Dosage: 15 MG, QHS
     Route: 048
     Dates: start: 20091022
  11. HYDROXYZINE PAMOATE [Suspect]
     Indication: ANXIETY
     Dosage: 50 MG, BID PRN
     Route: 048
     Dates: start: 20101021
  12. MIRTAZAPINE [Suspect]
     Indication: DEPRESSION
     Dosage: 15 MG, QHS
     Route: 048
     Dates: start: 20091022, end: 20101101
  13. MIRTAZAPINE [Suspect]
     Dosage: 30 MG, QHS
     Route: 048
     Dates: start: 20100521
  14. GABAPENTIN [Suspect]
     Indication: ANXIETY

REACTIONS (19)
  - ANXIETY [None]
  - DRUG INEFFECTIVE [None]
  - FEAR OF WEIGHT GAIN [None]
  - HYPOTONIA [None]
  - DIARRHOEA [None]
  - HEADACHE [None]
  - GASTROINTESTINAL DISORDER [None]
  - ABDOMINAL PAIN [None]
  - DECREASED APPETITE [None]
  - NAUSEA [None]
  - COMPLETED SUICIDE [None]
  - WEIGHT DECREASED [None]
  - IRRITABLE BOWEL SYNDROME [None]
  - DEPRESSION [None]
  - ABDOMINAL DISCOMFORT [None]
  - INSOMNIA [None]
  - CHEST PAIN [None]
  - DYSPEPSIA [None]
  - RESTLESSNESS [None]
